FAERS Safety Report 6972446-9 (Version None)
Quarter: 2010Q3

REPORT INFORMATION
  Report Type: 
  Country: None (occurrence: None)
  Receive Date: 20100909
  Receipt Date: 20100827
  Transmission Date: 20110219
  Serious: Yes (Other)
  Sender: FDA-Public Use
  Company Number: PHHY2010MX57002

PATIENT
  Sex: Male
  Weight: 78 kg

DRUGS (1)
  1. RASILEZ HCT [Suspect]
     Dosage: 300/25 MG DAILY
     Route: 048
     Dates: start: 20100810, end: 20100811

REACTIONS (3)
  - DIZZINESS [None]
  - HEADACHE [None]
  - RENAL PAIN [None]
